FAERS Safety Report 6100583-X (Version None)
Quarter: 2009Q1

REPORT INFORMATION
  Report Type: 
  Country: None (occurrence: None)
  Receive Date: 20090227
  Receipt Date: 20090227
  Transmission Date: 20090719
  Serious: Yes (Death)
  Sender: FDA-Public Use
  Company Number: None

PATIENT
  Age: 59 Year
  Sex: Male
  Weight: 122.4712 kg

DRUGS (1)
  1. DURAGESIC-100 [Suspect]
     Indication: RIB FRACTURE
     Dosage: 100 MCG 3 DAYS CUTANEOUS
     Route: 003
     Dates: start: 20090103, end: 20090107

REACTIONS (2)
  - LOSS OF CONSCIOUSNESS [None]
  - RESPIRATORY ARREST [None]
